FAERS Safety Report 4709030-3 (Version None)
Quarter: 2005Q3

REPORT INFORMATION
  Report Type: 
  Country: None (occurrence: None)
  Receive Date: 20050707
  Receipt Date: 20050622
  Transmission Date: 20060218
  Serious: Yes (Hospitalization)
  Sender: FDA-Public Use
  Company Number: 2005084101

PATIENT
  Age: 67 Year
  Sex: Female

DRUGS (6)
  1. ARTHROTEC [Suspect]
     Indication: ARTHROPATHY
     Dosage: (1 IN 1 D), ORAL
     Route: 048
     Dates: start: 20050414, end: 20050418
  2. DILTIAZEM [Suspect]
     Indication: HYPERTENSION
     Dosage: 300 MG (300 MG, 1 IN 1 D), ORAL
     Route: 048
  3. PAROXETINE HCL [Suspect]
     Indication: DEPRESSION
     Dosage: 40 MG (40 MG, 1 IN 1 D), ORAL
     Route: 048
  4. OMEPRAZOLE [Concomitant]
  5. REPAGLINIDE (REPAGLINIDE) [Concomitant]
  6. METFORMIN HCL [Concomitant]

REACTIONS (2)
  - DRUG INTERACTION [None]
  - RECTAL HAEMORRHAGE [None]
